FAERS Safety Report 8918896 (Version 1)
Quarter: 2012Q4

REPORT INFORMATION
  Report Type: 
  Country: US (occurrence: US)
  Receive Date: 20121121
  Receipt Date: 20121121
  Transmission Date: 20130627
  Serious: No
  Sender: FDA-Public Use
  Company Number: US-TEVA-371134USA

PATIENT
  Sex: Female
  Weight: 68.1 kg

DRUGS (2)
  1. QVAR [Suspect]
     Indication: ASTHMA
     Dosage: 160 Microgram Daily; 2 puffs q 12 hours
     Route: 055
     Dates: start: 201112, end: 201201
  2. SYNTHROID [Concomitant]
     Indication: THYROID DISORDER
     Route: 048

REACTIONS (1)
  - Palpitations [Recovered/Resolved]
